FAERS Safety Report 4514946-7 (Version None)
Quarter: 2004Q4

REPORT INFORMATION
  Report Type: 
  Country: None (occurrence: None)
  Receive Date: 20041201
  Receipt Date: 20041020
  Transmission Date: 20050328
  Serious: Yes (Death, Other)
  Sender: FDA-Public Use
  Company Number: 200413272JP

PATIENT
  Age: 87 Year
  Sex: Female

DRUGS (1)
  1. LASIX [Suspect]

REACTIONS (3)
  - CANDIDA SEPSIS [None]
  - PANCREATITIS ACUTE [None]
  - PULMONARY OEDEMA [None]
